FAERS Safety Report 21066005 (Version 1)
Quarter: 2022Q3

REPORT INFORMATION
  Report Type: Spontaneous
  Country: CN (occurrence: CN)
  Receive Date: 20220711
  Receipt Date: 20220711
  Transmission Date: 20221027
  Serious: Yes (Hospitalization, Other)
  Sender: FDA-Public Use
  Company Number: CN-PFIZER INC-PV202200018372

PATIENT
  Age: 61 Year
  Sex: Female
  Weight: 56 kg

DRUGS (2)
  1. SUTENT [Suspect]
     Active Substance: SUNITINIB MALATE
     Indication: Renal cancer metastatic
     Dosage: 25 UNK
     Dates: end: 20220531
  2. SUTENT [Suspect]
     Active Substance: SUNITINIB MALATE
     Dosage: 50 MG, 1X/DAY
     Route: 048
     Dates: start: 20220601, end: 20220630

REACTIONS (6)
  - Myelosuppression [Recovered/Resolved]
  - Gingival bleeding [Recovered/Resolved]
  - Asthenia [Not Recovered/Not Resolved]
  - Inadequate diet [Unknown]
  - Poor quality sleep [Unknown]
  - Albumin urine present [Unknown]

NARRATIVE: CASE EVENT DATE: 20220701
